FAERS Safety Report 7206543-X (Version None)
Quarter: 2010Q4

REPORT INFORMATION
  Report Type: 
  Country: None (occurrence: None)
  Receive Date: 20101229
  Receipt Date: 20101229
  Transmission Date: 20110411
  Serious: Yes (Death, Hospitalization)
  Sender: FDA-Public Use
  Company Number: None

PATIENT
  Age: 36 Year
  Sex: Male
  Weight: 82.1011 kg

DRUGS (1)
  1. AVANDIA [Suspect]
     Indication: DIABETES MELLITUS
     Dosage: 4 MG PO
     Route: 048

REACTIONS (5)
  - CONVULSION [None]
  - HYPERTENSION [None]
  - LIVER INJURY [None]
  - PULMONARY HYPERTENSION [None]
  - THROMBOSIS [None]
